FAERS Safety Report 7242123-8 (Version None)
Quarter: 2011Q1

REPORT INFORMATION
  Report Type: 
  Country: None (occurrence: None)
  Receive Date: 20110124
  Receipt Date: 20101117
  Transmission Date: 20110831
  Serious: Yes (Life-Threatening, Hospitalization)
  Sender: FDA-Public Use
  Company Number: US-AMGEN-USASP2010004360

PATIENT
  Sex: Female
  Weight: 110 kg

DRUGS (5)
  1. ARANESP [Suspect]
     Indication: CHRONIC LYMPHOCYTIC LEUKAEMIA
     Dosage: 200 MG, UNK
     Route: 058
     Dates: start: 20101026
  2. RITUXIMAB [Concomitant]
  3. ARANESP [Suspect]
     Indication: ANAEMIA OF MALIGNANT DISEASE
     Dosage: 200 MG, UNK
     Route: 058
     Dates: start: 20101012
  4. ARANESP [Suspect]
     Dates: start: 20100101
  5. VINCRISTINE [Concomitant]

REACTIONS (2)
  - ANAEMIA [None]
  - APLASIA PURE RED CELL [None]
